FAERS Safety Report 4564563-8 (Version None)
Quarter: 2005Q1

REPORT INFORMATION
  Report Type: 
  Country: None (occurrence: None)
  Receive Date: 20050126
  Receipt Date: 20050121
  Transmission Date: 20050727
  Serious: Yes (Hospitalization)
  Sender: FDA-Public Use
  Company Number: TCI2005A00138

PATIENT
  Age: 35 Year
  Sex: Female

DRUGS (2)
  1. LEUPROLIDE ACETATE [Suspect]
     Indication: BREAST CANCER
     Dosage: 3.75 MG (3.75 MG 1 IN 28 D)
     Dates: start: 20041201
  2. ADRIACIN(DOXORUBICIN HYDROCHLORIDE)(INJECTION) [Suspect]

REACTIONS (2)
  - PANCYTOPENIA [None]
  - PYREXIA [None]
